FAERS Safety Report 6675197-3 (Version None)
Quarter: 2010Q2

REPORT INFORMATION
  Report Type: 
  Country: None (occurrence: None)
  Receive Date: 20100409
  Receipt Date: 20100406
  Transmission Date: 20101027
  Serious: Yes (Other)
  Sender: FDA-Public Use
  Company Number: US-JNJFOC-20100112019

PATIENT
  Sex: Female

DRUGS (5)
  1. TYLENOL [Suspect]
     Route: 048
  2. TYLENOL [Suspect]
     Indication: ARTHRITIS
     Route: 048
  3. ZANTAC [Concomitant]
     Indication: DYSPEPSIA
  4. CELEXA [Concomitant]
     Indication: DEPRESSION
  5. NASONEX [Concomitant]
     Indication: RHINITIS

REACTIONS (4)
  - ABDOMINAL PAIN [None]
  - NAUSEA [None]
  - PRODUCT QUALITY ISSUE [None]
  - VOMITING [None]
